FAERS Safety Report 13158047 (Version 3)
Quarter: 2017Q2

REPORT INFORMATION
  Report Type: Spontaneous
  Country: US (occurrence: US)
  Receive Date: 20170127
  Receipt Date: 20170530
  Transmission Date: 20170830
  Serious: No
  Sender: FDA-Public Use
  Company Number: US-PFIZER INC-2017037083

PATIENT
  Sex: Male

DRUGS (1)
  1. INLYTA [Suspect]
     Active Substance: AXITINIB
     Indication: CLEAR CELL RENAL CELL CARCINOMA
     Dosage: 3 MG, TWICE DAILY (1 MG TABLETS, 3 TABLETS IN THE MORNING AND 3 TABLETS IN THE EVENING)
     Route: 048
     Dates: start: 201502, end: 20170130

REACTIONS (1)
  - Fatigue [Unknown]
